FAERS Safety Report 5370287-X (Version None)
Quarter: 2007Q2

REPORT INFORMATION
  Report Type: 
  Country: None (occurrence: None)
  Receive Date: 20070626
  Receipt Date: 20070621
  Transmission Date: 20071010
  Serious: Yes (Death, Life-Threatening, Disabling)
  Sender: FDA-Public Use
  Company Number: JP-AVENTIS-200711123JP

PATIENT
  Age: 79 Year
  Sex: Female

DRUGS (6)
  1. DISOPYRAMIDE [Suspect]
     Route: 048
     Dates: start: 20061005, end: 20070129
  2. LASIX [Suspect]
     Indication: CARDIAC FAILURE
     Route: 048
     Dates: start: 20061005, end: 20070129
  3. PREDNISOLONE [Suspect]
     Indication: MYASTHENIA GRAVIS
     Route: 048
  4. PREDNISOLONE [Suspect]
     Route: 042
     Dates: end: 20070202
  5. AMBENONIUM CHLORIDE [Concomitant]
     Indication: MYASTHENIA GRAVIS
     Route: 048
     Dates: start: 19910101, end: 20070129
  6. ASPARA K                           /00466902/ [Concomitant]
     Indication: HYPOKALAEMIA
     Route: 048
     Dates: start: 20061118, end: 20070129

REACTIONS (6)
  - DISSEMINATED INTRAVASCULAR COAGULATION [None]
  - HYPOKALAEMIA [None]
  - RESPIRATORY PARALYSIS [None]
  - SEPSIS [None]
  - STRESS CARDIOMYOPATHY [None]
  - VENTRICULAR TACHYCARDIA [None]
